FAERS Safety Report 10154942 (Version 1)
Quarter: 2014Q2

REPORT INFORMATION
  Report Type: Spontaneous
  Country: US (occurrence: None)
  Receive Date: 20140505
  Receipt Date: 20140505
  Transmission Date: 20141212
  Serious: Yes (Hospitalization)
  Sender: FDA-Public Use
  Company Number: None

PATIENT
  Age: 80 Year
  Sex: Female
  Weight: 55 kg

DRUGS (1)
  1. ALENDRONATE [Suspect]
     Dosage: 35 MG, EVERY 7 DAYS, ORAL
     Route: 048

REACTIONS (1)
  - Patella fracture [None]
